FAERS Safety Report 17130299 (Version 1)
Quarter: 2019Q4

REPORT INFORMATION
  Report Type: Report from Study
  Country: US (occurrence: US)
  Receive Date: 20191209
  Receipt Date: 20191209
  Transmission Date: 20200122
  Serious: Yes (Life-Threatening, Hospitalization)
  Sender: FDA-Public Use
  Company Number: US-PFIZER INC-2019528279

PATIENT
  Age: 42 Year
  Sex: Female

DRUGS (15)
  1. IRINOTECAN HCL [Suspect]
     Active Substance: IRINOTECAN HYDROCHLORIDE
     Indication: COLORECTAL CANCER METASTATIC
     Dosage: 180 MG/M2, EVERY TWO WEEKS FORTNIGHTY
     Route: 042
     Dates: start: 20180322
  2. 5-FLUOROURACIL [FLUOROURACIL SODIUM] [Suspect]
     Active Substance: FLUOROURACIL SODIUM
     Dosage: 2400 MG/M2, EVERY TWO WEEKS FORTNIGHTY
     Route: 042
     Dates: start: 20180322
  3. OXYCODONE [Concomitant]
     Active Substance: OXYCODONE
  4. AMLODIPINE [Concomitant]
     Active Substance: AMLODIPINE BESYLATE
  5. DIPHENOXYLATE HCL + ATROPINE SULFATE [Concomitant]
     Active Substance: ATROPINE SULFATE\DIPHENOXYLATE HYDROCHLORIDE
  6. FONDAPARINUX [Concomitant]
     Active Substance: FONDAPARINUX
  7. LOSARTAN. [Concomitant]
     Active Substance: LOSARTAN
  8. ONDANSETRON [Concomitant]
     Active Substance: ONDANSETRON
  9. LEUCOVORIN. [Suspect]
     Active Substance: LEUCOVORIN
     Indication: COLORECTAL CANCER METASTATIC
     Dosage: 400 MG/M2, EVERY TWO WEEKS FORTNIGHTY
     Route: 042
     Dates: start: 20180322
  10. 5-FLUOROURACIL [FLUOROURACIL SODIUM] [Suspect]
     Active Substance: FLUOROURACIL SODIUM
     Indication: COLORECTAL CANCER METASTATIC
     Dosage: 400 MG/M2, EVERY TWO WEEKS FORTNIGHTY
     Route: 040
     Dates: start: 20180322, end: 20180322
  11. LOPERAMIDE [Concomitant]
     Active Substance: LOPERAMIDE
  12. MULTI VITAMIN [ASCORBIC ACID;COLECALCIFEROL;NICOTINAMIDE;PANTHENOL;PYR [Concomitant]
  13. ROPINIROLE. [Concomitant]
     Active Substance: ROPINIROLE
  14. BISACODYL. [Concomitant]
     Active Substance: BISACODYL
  15. DULOXETINE. [Concomitant]
     Active Substance: DULOXETINE

REACTIONS (1)
  - Pulmonary embolism [Recovered/Resolved]

NARRATIVE: CASE EVENT DATE: 20180604
